FAERS Safety Report 5607579-2 (Version None)
Quarter: 2008Q1

REPORT INFORMATION
  Report Type: 
  Country: None (occurrence: None)
  Receive Date: 20080130
  Receipt Date: 20080124
  Transmission Date: 20080703
  Serious: Yes (Death)
  Sender: FDA-Public Use
  Company Number: JP-WYE-H02333508

PATIENT
  Sex: Male
  Weight: 57.8 kg

DRUGS (2)
  1. AMIODARONE HCL [Suspect]
     Indication: VENTRICULAR FIBRILLATION
     Dosage: 10 ML/MIN
     Route: 041
     Dates: start: 20071022
  2. BOSMIN [Concomitant]
     Route: 042
     Dates: start: 20071022

REACTIONS (1)
  - DEATH [None]
